FAERS Safety Report 8889865 (Version 3)
Quarter: 2014Q2

REPORT INFORMATION
  Report Type: Spontaneous
  Country: US (occurrence: US)
  Receive Date: 20121107
  Receipt Date: 20131024
  Transmission Date: 20141212
  Serious: No
  Sender: FDA-Public Use
  Company Number: US-PFIZER INC-2012269495

PATIENT
  Sex: Female
  Weight: 72.56 kg

DRUGS (3)
  1. PREMPRO [Suspect]
     Indication: MENOPAUSE
     Dosage: 0.625/2.5 MG, DAILY
     Dates: end: 201208
  2. PREMPRO [Suspect]
     Indication: HOT FLUSH
  3. ATENOLOL [Concomitant]
     Indication: HEART RATE INCREASED
     Dosage: 25 MG, 1X/DAY

REACTIONS (2)
  - Headache [Recovered/Resolved]
  - Drug ineffective [Not Recovered/Not Resolved]
